FAERS Safety Report 12336428 (Version 2)
Quarter: 2018Q2

REPORT INFORMATION
  Report Type: Spontaneous
  Country: NO (occurrence: NO)
  Receive Date: 20160505
  Receipt Date: 20180524
  Transmission Date: 20180711
  Serious: Yes (Death)
  Sender: FDA-Public Use
  Company Number: NO-ACCORD-040311

PATIENT
  Age: 52 Year
  Sex: Male

DRUGS (10)
  1. CARISOPRODOL. [Suspect]
     Active Substance: CARISOPRODOL
  2. BISOLTUSSIN [Suspect]
     Active Substance: DEXTROMETHORPHAN HYDROBROMIDE
  3. NORTRIPTYLINE [Suspect]
     Active Substance: NORTRIPTYLINE
  4. LONARID [Suspect]
     Active Substance: ACETAMINOPHEN\AMOBARBITAL\CAFFEINE\CODEINE PHOSPHATE
  5. AMITRIPTYLINE [Suspect]
     Active Substance: AMITRIPTYLINE
  6. IBUPROFEN. [Suspect]
     Active Substance: IBUPROFEN
  7. ORAMORPH [Suspect]
     Active Substance: MORPHINE SULFATE
  8. MEPROBAMATE. [Suspect]
     Active Substance: MEPROBAMATE
  9. PARACETAMOL [Suspect]
     Active Substance: ACETAMINOPHEN
  10. OXAZEPAM. [Suspect]
     Active Substance: OXAZEPAM

REACTIONS (1)
  - Toxicity to various agents [Fatal]
